FAERS Safety Report 6013170-9 (Version None)
Quarter: 2008Q4

REPORT INFORMATION
  Report Type: 
  Country: None (occurrence: None)
  Receive Date: 20081218
  Receipt Date: 20081218
  Transmission Date: 20090506
  Serious: No
  Sender: FDA-Public Use
  Company Number: None

PATIENT
  Sex: Male

DRUGS (1)
  1. HUMIRA [Suspect]
     Dosage: 40MG SQ SQ
     Route: 058
     Dates: start: 20081125

REACTIONS (2)
  - INFLUENZA LIKE ILLNESS [None]
  - THIRST [None]
